FAERS Safety Report 8375992-9 (Version None)
Quarter: 2012Q2

REPORT INFORMATION
  Report Type: 
  Country: None (occurrence: None)
  Receive Date: 20120517
  Receipt Date: 20120503
  Transmission Date: 20120825
  Serious: Yes (Life-Threatening, Hospitalization)
  Sender: FDA-Public Use
  Company Number: 217396

PATIENT
  Age: 76 Year
  Sex: Male
  Weight: 59.5 kg

DRUGS (3)
  1. INNOHEP [Suspect]
     Indication: KNEE ARTHROPLASTY
     Dosage: 0.45 ML (0.45 ML, 1 IN 1 D), SUBCUTANEOUS
     Route: 058
     Dates: start: 20120404, end: 20120417
  2. IRBESARTAN AND HYDROCHLOROTHIAZIDE [Concomitant]
  3. AMLODIPINE BESYLATE [Concomitant]

REACTIONS (2)
  - INTRACRANIAL PRESSURE INCREASED [None]
  - SUBDURAL HAEMATOMA [None]
